FAERS Safety Report 7325998-3 (Version None)
Quarter: 2011Q1

REPORT INFORMATION
  Report Type: 
  Country: None (occurrence: None)
  Receive Date: 20110302
  Receipt Date: 20110225
  Transmission Date: 20110831
  Serious: No
  Sender: FDA-Public Use
  Company Number: US-PFIZER INC-2011042013

PATIENT
  Sex: Female

DRUGS (6)
  1. CYMBALTA [Concomitant]
     Dosage: 60 MG, UNK
  2. LYRICA [Suspect]
     Indication: NEUROPATHY PERIPHERAL
     Dosage: 150MG IN MORNING, 150MG IN THE EVENING AND 300MG AT NIGHT
     Route: 048
     Dates: start: 20090501
  3. LYRICA [Suspect]
     Dosage: 75MG IN THE MORNING AND 150MG
     Dates: start: 20110101
  4. DEPAKOTE [Concomitant]
     Dosage: 250 MG, UNK
  5. SYNTHROID [Concomitant]
     Dosage: 0.75 MG, UNK
  6. LYRICA [Suspect]
     Dosage: 150MG IN THE MORNING AND 150MG AT NIGHT, 2X/DAY
     Dates: start: 20100101

REACTIONS (4)
  - INSOMNIA [None]
  - PAIN IN EXTREMITY [None]
  - ARTHRALGIA [None]
  - BACK PAIN [None]
